FAERS Safety Report 9547302 (Version 1)
Quarter: 2013Q3

REPORT INFORMATION
  Report Type: Spontaneous
  Country: US (occurrence: None)
  Receive Date: 20130919
  Receipt Date: 20130919
  Transmission Date: 20140515
  Serious: Yes (Hospitalization)
  Sender: FDA-Public Use
  Company Number: US-000786

PATIENT
  Age: 62 Year
  Sex: Female

DRUGS (5)
  1. GATTEX [Suspect]
     Indication: SHORT-BOWEL SYNDROME
     Dosage: 0.25 ML QD, MISSED DOSE ON 02SEP2013 WHILE HOSPITALIZED; CONTINUED ON 03SEP2013 SUBCUTANEOUS)
     Route: 058
     Dates: start: 2013
  2. VALIUM [Concomitant]
  3. ABILIFY [Concomitant]
  4. AMBIEN [Concomitant]
  5. VIIBRYD [Concomitant]

REACTIONS (4)
  - Vomiting [None]
  - Abdominal pain [None]
  - Back pain [None]
  - Intestinal obstruction [None]
